FAERS Safety Report 18719047 (Version 1)
Quarter: 2021Q1

REPORT INFORMATION
  Report Type: Spontaneous
  Country: US (occurrence: US)
  Receive Date: 20210108
  Receipt Date: 20210108
  Transmission Date: 20210419
  Serious: Yes (Hospitalization)
  Sender: FDA-Public Use
  Company Number: US-NOVOPROD-756318

PATIENT
  Age: 58 Year
  Sex: Female
  Weight: 110.22 kg

DRUGS (7)
  1. RYBELSUS [Suspect]
     Active Substance: SEMAGLUTIDE
     Indication: TYPE 2 DIABETES MELLITUS
     Dosage: 7 MG
     Route: 048
     Dates: start: 20200410, end: 20200902
  2. ZOLOFT [Concomitant]
     Active Substance: SERTRALINE HYDROCHLORIDE
     Indication: DEPRESSION
     Route: 048
  3. SYNTHROID [Concomitant]
     Active Substance: LEVOTHYROXINE SODIUM
     Indication: HYPOTHYROIDISM
     Dosage: 25 ???G, QD BEFORE BREAKFAST
  4. HYDRODIURIL [Concomitant]
     Active Substance: HYDROCHLOROTHIAZIDE
     Indication: ESSENTIAL HYPERTENSION
     Dosage: 12.5 MG, QD
     Route: 048
  5. NORCO [Concomitant]
     Active Substance: ACETAMINOPHEN\HYDROCODONE BITARTRATE
     Indication: PAIN
     Dosage: 7.5?325 MG EVERY 6 HOURS AS NEEDED FOR PAIN
     Route: 048
  6. LOTENSIN [Concomitant]
     Active Substance: BENAZEPRIL HYDROCHLORIDE
     Indication: ESSENTIAL HYPERTENSION
     Dosage: 20 MG, QD
     Route: 048
  7. SKELAXIN [Concomitant]
     Active Substance: METAXALONE
     Indication: PAIN
     Dosage: 800 MG, TID
     Route: 048

REACTIONS (5)
  - Cough [Unknown]
  - Arthralgia [Unknown]
  - Pancreatitis acute [Recovered/Resolved]
  - Dyspnoea [Unknown]
  - Fatigue [Unknown]

NARRATIVE: CASE EVENT DATE: 2020
